FAERS Safety Report 5730250-3 (Version None)
Quarter: 2008Q2

REPORT INFORMATION
  Report Type: 
  Country: None (occurrence: None)
  Receive Date: 20080505
  Receipt Date: 20080505
  Transmission Date: 20081010
  Serious: Yes (Other)
  Sender: FDA-Public Use
  Company Number: None

PATIENT
  Sex: Male
  Weight: 90.7194 kg

DRUGS (2)
  1. DIGOXIN -DIGITEK- .125MG MEDCO AMIDE-BERTEK- [Suspect]
     Indication: CARDIOMYOPATHY
     Dosage: .125MG DAILY PO
     Route: 048
     Dates: start: 20060808, end: 20080502
  2. DIGOXIN -DIGITEK- .125MG MEDCO AMIDE-BERTEK- [Suspect]
     Indication: VENTRICULAR TACHYCARDIA
     Dosage: .125MG DAILY PO
     Route: 048
     Dates: start: 20060808, end: 20080502

REACTIONS (7)
  - BALANCE DISORDER [None]
  - DIZZINESS [None]
  - FATIGUE [None]
  - HYPOTENSION [None]
  - NAUSEA [None]
  - VISION BLURRED [None]
  - VOMITING [None]
